FAERS Safety Report 10760720 (Version 1)
Quarter: 2015Q1

REPORT INFORMATION
  Report Type: Report from Study
  Country: CN (occurrence: CN)
  Receive Date: 20150204
  Receipt Date: 20150204
  Transmission Date: 20150721
  Serious: Yes (Hospitalization)
  Sender: FDA-Public Use
  Company Number: CN-ROCHE-1528245

PATIENT
  Age: 61 Year
  Sex: Female
  Weight: 51 kg

DRUGS (13)
  1. MAGNESIUM ISOGLYCYRRHIZINATE [Concomitant]
     Route: 065
     Dates: start: 20111115, end: 20111202
  2. CIMETIDINE [Concomitant]
     Active Substance: CIMETIDINE
     Route: 065
     Dates: start: 20111115, end: 20111116
  3. TROPISETRON [Concomitant]
     Active Substance: TROPISETRON
     Route: 065
     Dates: start: 20111115, end: 20111116
  4. TRASTUZUMAB [Suspect]
     Active Substance: TRASTUZUMAB
     Route: 042
     Dates: start: 20111124
  5. CARBOPLATIN. [Suspect]
     Active Substance: CARBOPLATIN
     Indication: BREAST CANCER
     Dosage: LAST DOSE PRIOR TO SAE: 15/NOV/2011
     Route: 042
     Dates: start: 20111115, end: 20111121
  6. PACLITAXEL. [Suspect]
     Active Substance: PACLITAXEL
     Indication: BREAST CANCER
     Dosage: LAST DOSE PRIOR TO SAE: 15/NOV/2011
     Route: 042
     Dates: start: 20111115, end: 20111121
  7. CARBOPLATIN. [Suspect]
     Active Substance: CARBOPLATIN
     Route: 042
     Dates: start: 20111124
  8. DEXAMETHASONE. [Concomitant]
     Active Substance: DEXAMETHASONE
     Route: 065
     Dates: start: 20111124, end: 20111125
  9. TRASTUZUMAB [Suspect]
     Active Substance: TRASTUZUMAB
     Indication: BREAST CANCER
     Dosage: LAST DOSE PRIOR TO SAE: 15/NOV/2011
     Route: 042
     Dates: start: 20111115, end: 20111121
  10. DEXAMETHASONE. [Concomitant]
     Active Substance: DEXAMETHASONE
     Route: 065
     Dates: start: 20111115, end: 20111116
  11. TROPISETRON [Concomitant]
     Active Substance: TROPISETRON
     Route: 065
     Dates: start: 20111124, end: 20111125
  12. PACLITAXEL. [Suspect]
     Active Substance: PACLITAXEL
     Route: 042
     Dates: start: 20111124
  13. CIMETIDINE [Concomitant]
     Active Substance: CIMETIDINE
     Route: 065
     Dates: start: 20111124, end: 20111125

REACTIONS (2)
  - Hepatic enzyme increased [Unknown]
  - Hepatic function abnormal [Recovering/Resolving]

NARRATIVE: CASE EVENT DATE: 20111121
